FAERS Safety Report 7005158-6 (Version None)
Quarter: 2010Q3

REPORT INFORMATION
  Report Type: 
  Country: None (occurrence: None)
  Receive Date: 20100921
  Receipt Date: 20100915
  Transmission Date: 20110219
  Serious: Yes (Other)
  Sender: FDA-Public Use
  Company Number: US-SANOFI-AVENTIS-2010SA055760

PATIENT
  Age: 62 Year
  Sex: Female

DRUGS (2)
  1. CARAC [Suspect]
     Indication: ACTINIC KERATOSIS
     Dosage: APPLY DAILY UNTIL IRRITATION DEVELOPS FOR 1 WEEK, THEN STOP AND LET HEAL
     Route: 003
     Dates: start: 20100224, end: 20100301
  2. THYROID [Concomitant]
     Indication: THYROID DISORDER

REACTIONS (4)
  - ERYTHEMA [None]
  - PRODUCT QUALITY ISSUE [None]
  - SCAR [None]
  - SKIN IRRITATION [None]
